FAERS Safety Report 8324719-5 (Version None)
Quarter: 2012Q2

REPORT INFORMATION
  Report Type: 
  Country: None (occurrence: None)
  Receive Date: 20120501
  Receipt Date: 20120423
  Transmission Date: 20120825
  Serious: Yes (Congenital Anomaly, Other)
  Sender: FDA-Public Use
  Company Number: US-US-EMD SERONO, INC.-7122544

PATIENT
  Sex: Male

DRUGS (3)
  1. REBIF [Suspect]
     Indication: MULTIPLE SCLEROSIS
     Route: 058
     Dates: start: 20110926
  2. TYLENOL (CAPLET) [Concomitant]
     Indication: COARCTATION OF THE AORTA
  3. ASPIRIN [Concomitant]
     Indication: HYPERTENSION

REACTIONS (5)
  - ALPHA-1 ANTI-TRYPSIN DEFICIENCY [None]
  - INJECTION SITE ERYTHEMA [None]
  - GALLBLADDER POLYP [None]
  - PAIN [None]
  - MULTIPLE SCLEROSIS RELAPSE [None]
